FAERS Safety Report 10340779 (Version 1)
Quarter: 2014Q3

REPORT INFORMATION
  Report Type: Spontaneous
  Country: US (occurrence: US)
  Receive Date: 20140724
  Receipt Date: 20140724
  Transmission Date: 20150326
  Serious: Yes (Other)
  Sender: FDA-Public Use
  Company Number: CHPA2014US009590

PATIENT
  Age: 86 Year
  Sex: Male

DRUGS (3)
  1. VOLTAREN [Suspect]
     Active Substance: DICLOFENAC SODIUM
     Indication: MUSCULOSKELETAL PAIN
     Dosage: UNK, TID
     Route: 061
     Dates: start: 20140712
  2. TYLENOL [Concomitant]
     Active Substance: ACETAMINOPHEN
  3. VOLTAREN [Suspect]
     Active Substance: DICLOFENAC SODIUM
     Indication: OFF LABEL USE

REACTIONS (7)
  - Drug ineffective for unapproved indication [Unknown]
  - Hallucination, visual [Recovered/Resolved]
  - Feeling abnormal [Unknown]
  - Screaming [Recovered/Resolved]
  - Wrong technique in drug usage process [Unknown]
  - Somnolence [Recovered/Resolved]
  - Incorrect dose administered [Unknown]

NARRATIVE: CASE EVENT DATE: 20140712
